FAERS Safety Report 23979915 (Version 2)
Quarter: 2024Q2

REPORT INFORMATION
  Report Type: Report from Study
  Country: US (occurrence: US)
  Receive Date: 20240617
  Receipt Date: 20240625
  Transmission Date: 20240716
  Serious: Yes (Hospitalization, Other)
  Sender: FDA-Public Use
  Company Number: US-ABBVIE-5785613

PATIENT
  Sex: Female

DRUGS (2)
  1. CREON [Suspect]
     Active Substance: PANCRELIPASE AMYLASE\PANCRELIPASE LIPASE\PANCRELIPASE PROTEASE
     Indication: Product used for unknown indication
     Dosage: FORM STRENGTH: 36000 UNIT,?FREQUENCY TEXT: AS DIRECTED, DELAYED RELEASE
     Route: 048
  2. CREON [Suspect]
     Active Substance: PANCRELIPASE AMYLASE\PANCRELIPASE LIPASE\PANCRELIPASE PROTEASE
     Indication: Product used for unknown indication
     Dosage: FORM STRENGTH: 36000 UNIT?FREQUENCY TEXT: AS DIRECTED
     Route: 048
     Dates: end: 20240531

REACTIONS (12)
  - Disability [Not Recovered/Not Resolved]
  - Hospitalisation [Unknown]
  - Pancreatitis [Not Recovered/Not Resolved]
  - Diarrhoea [Unknown]
  - Illness [Unknown]
  - Bowel movement irregularity [Not Recovered/Not Resolved]
  - Feeding disorder [Not Recovered/Not Resolved]
  - Dehydration [Not Recovered/Not Resolved]
  - Autoimmune disorder [Not Recovered/Not Resolved]
  - Asthenia [Unknown]
  - Abdominal distension [Unknown]
  - Pain [Unknown]

NARRATIVE: CASE EVENT DATE: 20230101
